FAERS Safety Report 18932506 (Version 1)
Quarter: 2021Q1

REPORT INFORMATION
  Report Type: Spontaneous
  Country: NL (occurrence: NL)
  Receive Date: 20210224
  Receipt Date: 20210224
  Transmission Date: 20210420
  Serious: Yes (Other)
  Sender: FDA-Public Use
  Company Number: NL-TEVA-2021-NL-1882738

PATIENT
  Sex: Male
  Weight: 90 kg

DRUGS (2)
  1. OXAZEPAM TABLET 10MG / BRAND NAME NOT SPECIFIED [Concomitant]
     Active Substance: OXAZEPAM
     Dosage: 10 MG, VERY OCCASIONAL USE HALF A TABLET. THE GENTLEMAN DOES NOT REMEMBER WHETHER HE HAD HALF A TABL
  2. VENLAFAXINE CAPSULE MGA  75MG / BRAND NAME NOT SPECIFIED [Suspect]
     Active Substance: VENLAFAXINE HYDROCHLORIDE
     Indication: DEPRESSION
     Dosage: 75 MILLIGRAM DAILY;
     Dates: start: 20201104, end: 20201108

REACTIONS (1)
  - Glaucoma [Recovered/Resolved]
